FAERS Safety Report 6883285-1 (Version None)
Quarter: 2010Q3

REPORT INFORMATION
  Report Type: 
  Country: None (occurrence: None)
  Receive Date: 20100727
  Receipt Date: 20070712
  Transmission Date: 20110219
  Serious: Yes (Hospitalization, Other)
  Sender: FDA-Public Use
  Company Number: US-PFIZER INC-2005076002

PATIENT
  Sex: Male
  Weight: 74.8 kg

DRUGS (3)
  1. CELEBREX [Suspect]
     Indication: BACK PAIN
     Dates: start: 20010501, end: 20020601
  2. BEXTRA [Suspect]
     Indication: BACK PAIN
     Dates: start: 20021201, end: 20040201
  3. VIOXX [Suspect]

REACTIONS (1)
  - MYOCARDIAL INFARCTION [None]
